FAERS Safety Report 8272528-8 (Version None)
Quarter: 2012Q2

REPORT INFORMATION
  Report Type: 
  Country: None (occurrence: None)
  Receive Date: 20120410
  Receipt Date: 20120327
  Transmission Date: 20120825
  Serious: Yes (Disabling, Other)
  Sender: FDA-Public Use
  Company Number: AU-ROCHE-1055389

PATIENT
  Sex: Male

DRUGS (3)
  1. HEPARIN [Suspect]
     Indication: ACUTE MYOCARDIAL INFARCTION
     Route: 042
     Dates: start: 20120313
  2. METALYSE [Suspect]
     Indication: ACUTE MYOCARDIAL INFARCTION
     Dates: start: 20120313
  3. WARFARIN SODIUM [Suspect]
     Indication: PRODUCT USED FOR UNKNOWN INDICATION

REACTIONS (4)
  - ISCHAEMIC STROKE [None]
  - SUBDURAL HAEMATOMA [None]
  - AMNESIA [None]
  - HEMIANOPIA [None]
